FAERS Safety Report 17964305 (Version 1)
Quarter: 2020Q2

REPORT INFORMATION
  Report Type: Spontaneous
  Country: US (occurrence: US)
  Receive Date: 20200630
  Receipt Date: 20200630
  Transmission Date: 20200714
  Serious: Yes (Death)
  Sender: FDA-Public Use
  Company Number: US-FRESENIUS KABI-FK202006534

PATIENT
  Age: 33 Year
  Sex: Female

DRUGS (1)
  1. OXYTOCIN INJECTION (MANUFACTURER UNKNOWN) [Suspect]
     Active Substance: OXYTOCIN
     Indication: LABOUR INDUCTION
     Route: 065

REACTIONS (2)
  - Cardio-respiratory arrest [Fatal]
  - Anaphylactoid syndrome of pregnancy [Fatal]
